FAERS Safety Report 7872092-9 (Version None)
Quarter: 2011Q4

REPORT INFORMATION
  Report Type: 
  Country: None (occurrence: None)
  Receive Date: 20111014
  Receipt Date: 20110303
  Transmission Date: 20120403
  Serious: Yes (Hospitalization)
  Sender: FDA-Public Use
  Company Number: 1000016758

PATIENT
  Age: 60 Year
  Sex: Male

DRUGS (4)
  1. LEXAPRO [Suspect]
     Indication: DEPRESSION
     Dosage: 10 MG (10 MG, 1 IN 1 D), ORAL
     Route: 048
     Dates: start: 20101004, end: 20101008
  2. XYZAL (LEVOCETIRIZINE DIHYDROCHLORIDE) (LEVOCETIRIZINE DIHYDROCHLORIDE [Concomitant]
  3. AZOR (AMLODIPINE, OLMESARTAN) (AMLODIPINE, OLMESARTAN) [Concomitant]
  4. PRILOSEC (OMEPRAZOLE) (OMEPRAZOLE) [Concomitant]

REACTIONS (6)
  - CHEST PAIN [None]
  - HYPERHIDROSIS [None]
  - ELECTROCARDIOGRAM CHANGE [None]
  - NAUSEA [None]
  - TREMOR [None]
  - PARAESTHESIA [None]
